FAERS Safety Report 21458186 (Version 3)
Quarter: 2023Q2

REPORT INFORMATION
  Report Type: Report from Study
  Country: US (occurrence: US)
  Receive Date: 20221014
  Receipt Date: 20230630
  Transmission Date: 20230721
  Serious: Yes (Death, Other)
  Sender: FDA-Public Use
  Company Number: US-GW PHARMA-2022-US-032382

PATIENT
  Age: 9 Year
  Sex: Male
  Weight: 20 kg

DRUGS (5)
  1. EPIDIOLEX [Suspect]
     Active Substance: CANNABIDIOL
     Indication: Lennox-Gastaut syndrome
     Dosage: 2.5 MILLILITER, BID
     Route: 048
  2. VALPROATE SODIUM [Concomitant]
     Active Substance: VALPROATE SODIUM
     Dosage: 5 MILLILITER, TID
  3. VALPROATE SODIUM [Concomitant]
     Active Substance: VALPROATE SODIUM
     Dosage: 6 UNK
  4. ZONEGRAN [Concomitant]
     Active Substance: ZONISAMIDE
     Dosage: 20 MILLILITER, QD
  5. ZONEGRAN [Concomitant]
     Active Substance: ZONISAMIDE
     Dosage: 25 UNK QD

REACTIONS (1)
  - Death [Fatal]

NARRATIVE: CASE EVENT DATE: 20220911
